FAERS Safety Report 9522990 (Version 1)
Quarter: 2013Q1

REPORT INFORMATION
  Report Type: Spontaneous
  Country: US (occurrence: None)
  Receive Date: 20130305
  Receipt Date: 20130305
  Transmission Date: 20140127
  Serious: Yes (Hospitalization)
  Sender: FDA-Public Use
  Company Number: 163-21880-12032906

PATIENT
  Age: 68 Year
  Sex: Female

DRUGS (9)
  1. REVLIMID (LENALIDOMIDE) (CAPSULES) [Suspect]
     Indication: MYELODYSPLASTIC SYNDROME
     Route: 048
     Dates: start: 20110825
  2. ALLOPURINOL (ALLOPURINOL) (UNKNOWN) [Concomitant]
  3. AMIODARONE HCL (AMIODARONE HYDROCHLORIDE) (UNKNOWN) [Concomitant]
  4. CHLORTHALIDONE (CHLORTALIDONE) (UNKNOWN) [Concomitant]
  5. COZAAR (LOSARTAN POTASSIUM) (UNKNOWN) [Concomitant]
  6. FISH OIL (FISH OIL) (UNKNOWN) [Concomitant]
  7. GABAPENTIN (GABAPENTIN) (UNKNOWN) (GABAPENTIN) [Concomitant]
  8. HYDROCHLOROTHIAZIDE (HYDROCHLOROTHIAZIDE) (UNKNOWN) [Concomitant]
  9. LASIX (FUROSEMIDE) (UNKNOWN) [Concomitant]

REACTIONS (1)
  - Anaemia [None]
